FAERS Safety Report 5396451-1 (Version None)
Quarter: 2007Q3

REPORT INFORMATION
  Report Type: 
  Country: None (occurrence: None)
  Receive Date: 20070725
  Receipt Date: 20070712
  Transmission Date: 20080115
  Serious: Yes (Hospitalization)
  Sender: FDA-Public Use
  Company Number: US-ELI_LILLY_AND_COMPANY-US200707002040

PATIENT
  Age: 69 Year
  Sex: Female

DRUGS (1)
  1. FORTEO [Suspect]
     Indication: OSTEOPOROSIS
     Dosage: 20 UG, UNK
     Dates: start: 20061101, end: 20070701

REACTIONS (5)
  - COORDINATION ABNORMAL [None]
  - DIPLOPIA [None]
  - DIZZINESS [None]
  - PARAESTHESIA [None]
  - VISUAL DISTURBANCE [None]
